FAERS Safety Report 7248705-1 (Version None)
Quarter: 2011Q1

REPORT INFORMATION
  Report Type: 
  Country: None (occurrence: None)
  Receive Date: 20110119
  Receipt Date: 20110119
  Transmission Date: 20110831
  Serious: Yes (Other)
  Sender: FDA-Public Use
  Company Number: None

PATIENT
  Age: 42 Year
  Sex: Female
  Weight: 68.0396 kg

DRUGS (4)
  1. FLUOXETINE [Suspect]
     Indication: MAJOR DEPRESSION
     Dosage: 1X 40 MG CAPSULE QD PO
     Route: 048
     Dates: start: 20110109, end: 20110115
  2. CLONAZEPAM [Concomitant]
  3. FLUOXETINE [Suspect]
     Indication: MAJOR DEPRESSION
     Dosage: 2X 20 MG CAPSULES QD PO
     Route: 048
     Dates: start: 20100825, end: 20100914
  4. SYNTHROID [Concomitant]

REACTIONS (5)
  - DIZZINESS [None]
  - DEPRESSIVE SYMPTOM [None]
  - PRODUCT SUBSTITUTION ISSUE [None]
  - NERVOUSNESS [None]
  - DECREASED APPETITE [None]
